FAERS Safety Report 13434185 (Version 1)
Quarter: 2017Q2

REPORT INFORMATION
  Report Type: Spontaneous
  Country: US (occurrence: US)
  Receive Date: 20170413
  Receipt Date: 20170413
  Transmission Date: 20170830
  Serious: No
  Sender: FDA-Public Use
  Company Number: US-PFIZER INC-2017157115

PATIENT
  Age: 69 Year
  Sex: Female
  Weight: 97.52 kg

DRUGS (1)
  1. REVATIO [Suspect]
     Active Substance: SILDENAFIL CITRATE
     Dosage: 20 MG, 3X/DAY

REACTIONS (4)
  - Irritability [Unknown]
  - Abnormal dreams [Unknown]
  - Drug ineffective [Unknown]
  - Depression [Unknown]
